FAERS Safety Report 5315428-5 (Version None)
Quarter: 2007Q2

REPORT INFORMATION
  Report Type: 
  Country: None (occurrence: None)
  Receive Date: 20070503
  Receipt Date: 20070428
  Transmission Date: 20071010
  Serious: Yes (Death, Hospitalization, Other)
  Sender: FDA-Public Use
  Company Number: PHEH2007US06562

PATIENT
  Age: 77 Year
  Sex: Female

DRUGS (1)
  1. ZELNORM [Suspect]
     Indication: CONSTIPATION
     Dosage: 6 MG, BID
     Route: 048
     Dates: start: 20061229, end: 20070129

REACTIONS (4)
  - ANGIOPATHY [None]
  - APHASIA [None]
  - CEREBROVASCULAR ACCIDENT [None]
  - DYSPHEMIA [None]
